FAERS Safety Report 7450027-0 (Version None)
Quarter: 2011Q2

REPORT INFORMATION
  Report Type: 
  Country: None (occurrence: None)
  Receive Date: 20110502
  Receipt Date: 20091120
  Transmission Date: 20111010
  Serious: Yes (Other)
  Sender: FDA-Public Use
  Company Number: US-BAYER-200940893NA

PATIENT
  Age: 45 Year
  Sex: Male
  Weight: 104.31 kg

DRUGS (28)
  1. LOPRESSOR [Concomitant]
     Dosage: 50 MG, BID
     Route: 048
  2. HYDROCHLOROTHIAZIDE [Concomitant]
     Dosage: 25 MG, QD
     Route: 048
  3. PROPOXYPHENE HYDROCHLORIDE [Concomitant]
     Dosage: UNK UNK, Q4HR
     Route: 048
  4. PROTAMINE SULFATE [Concomitant]
     Dosage: 250 MG, UNK
     Route: 042
     Dates: start: 20070325
  5. ANCEF [Concomitant]
     Dosage: 2 G, UNK
     Route: 042
     Dates: start: 20070325
  6. HEPARIN [Concomitant]
     Dosage: 5000 U, UNK
     Route: 042
     Dates: start: 20070325
  7. AMIODARONE [Concomitant]
     Dosage: UNK
     Dates: start: 20070325
  8. ASPIRIN [Concomitant]
     Dosage: 81 MG, QD
     Route: 048
  9. INTEGRILIN [Concomitant]
  10. PREDNISONE [Concomitant]
     Indication: PRODUCT USED FOR UNKNOWN INDICATION
     Dosage: 20 MG, TID
     Route: 048
     Dates: start: 20070213
  11. HEPARIN [Concomitant]
     Dosage: 15000 U, UNK
     Route: 042
     Dates: start: 20070325
  12. TRASYLOL [Suspect]
     Indication: CORONARY ARTERY BYPASS
  13. PLAVIX [Concomitant]
     Dosage: 75 MG, QD
     Route: 048
  14. PAPAVERINE [PAPAVERINE] [Concomitant]
     Dosage: 120 MG, UNK
     Route: 042
  15. PAPAVERINE [PAPAVERINE] [Concomitant]
     Dosage: 60 MG, UNK
     Route: 042
  16. ZOCOR [Concomitant]
     Dosage: 20 MG, QD
     Route: 048
  17. LOVENOX [Concomitant]
     Route: 058
  18. DOPAMINE HCL [Concomitant]
     Dosage: UNK
     Route: 042
     Dates: start: 20070325
  19. AMIODARONE [Concomitant]
     Dosage: 150 MG, UNK
     Route: 042
     Dates: start: 20070325
  20. LISINOPRIL [Concomitant]
     Dosage: 20 MG, UNK
     Route: 048
  21. ACETAMINOPHEN [Concomitant]
     Dosage: 650 MG 2 TABS EVERY 4 HRS AS NEEDED
     Route: 048
  22. KANTREX [Concomitant]
     Dosage: 1 G, UNK
     Route: 042
     Dates: start: 20070325
  23. LIDOCAINE [Concomitant]
     Dosage: 100 MG, UNK
     Route: 042
     Dates: start: 20070325
  24. PROTONIX [Concomitant]
     Route: 048
  25. LABETALOL [Concomitant]
     Dosage: 20MG/4ML 10MG AS NEEDED
     Route: 042
  26. PHENYLEPHRINE HCL [Concomitant]
     Dosage: UNK
     Route: 042
     Dates: start: 20070325
  27. MILRINONE [Concomitant]
     Dosage: 2 MG, UNK
     Route: 042
     Dates: start: 20070325
  28. INSULIN HUMAN [Concomitant]
     Dosage: UNK
     Route: 042
     Dates: start: 20070325

REACTIONS (11)
  - DISABILITY [None]
  - INJURY [None]
  - ANXIETY [None]
  - RENAL FAILURE [None]
  - DEPRESSION [None]
  - PAIN [None]
  - UNEVALUABLE EVENT [None]
  - ANHEDONIA [None]
  - MULTI-ORGAN FAILURE [None]
  - RENAL INJURY [None]
  - FEAR [None]
